FAERS Safety Report 13611478 (Version 1)
Quarter: 2017Q2

REPORT INFORMATION
  Report Type: Spontaneous
  Country: CH (occurrence: CH)
  Receive Date: 20170605
  Receipt Date: 20170605
  Transmission Date: 20170830
  Serious: Yes (Other)
  Sender: FDA-Public Use
  Company Number: CH-PFIZER INC-2017221981

PATIENT
  Age: 34 Year
  Sex: Male

DRUGS (4)
  1. PHENOBARBITONE [Interacting]
     Active Substance: PHENOBARBITAL
     Indication: STATUS EPILEPTICUS
  2. EPANUTIN [Suspect]
     Active Substance: PHENYTOIN SODIUM
     Indication: EPILEPSY
     Dosage: 250 MG, 43 AMPOULES (TOTAL OF 10.75 G ON THE 8TH DAY)
     Route: 042
  3. EPANUTIN [Interacting]
     Active Substance: PHENYTOIN SODIUM
     Indication: STATUS EPILEPTICUS
  4. PHENOBARBITONE [Interacting]
     Active Substance: PHENOBARBITAL
     Indication: EPILEPSY
     Dosage: 200 MG, 29 AMPOULES (TOTAL 5.6 G ON THE 8TH DAY)
     Route: 042

REACTIONS (6)
  - Drug interaction [Unknown]
  - Respiratory depression [Unknown]
  - Nervous system disorder [Not Recovered/Not Resolved]
  - Toxicity to various agents [Unknown]
  - Overdose [Unknown]
  - Polyneuropathy [Recovered/Resolved]

NARRATIVE: CASE EVENT DATE: 197312
